FAERS Safety Report 8687125 (Version 2)
Quarter: 2013Q2

REPORT INFORMATION
  Report Type: Spontaneous
  Country: US (occurrence: None)
  Receive Date: 20120406
  Receipt Date: 20120705
  Transmission Date: 20140414
  Serious: Yes (Hospitalization)
  Sender: FDA-Public Use
  Company Number: US-CYPR-2011-000038

PATIENT
  Age: 75 Year
  Sex: Female
  Weight: 58 kg

DRUGS (13)
  1. CLOPIDOGREL [Suspect]
     Indication: ANTIPLATELET THERAPY
     Dosage: 75 MG QD ORAL
     Route: 048
     Dates: start: 20110316, end: 20110616
  2. ASPIRIN [Suspect]
     Indication: CORONARY ARTERY DISEASE
     Dosage: 325 MG QD ORAL
     Route: 048
     Dates: start: 20100311
  3. ASPIRIN [Suspect]
     Indication: THROMBOSIS PROPHYLAXIS
     Dosage: 325 MG QD ORAL
     Route: 048
     Dates: start: 20100311
  4. NIASPAN [Concomitant]
  5. FOSAMAX [Concomitant]
  6. NORVASC [Concomitant]
  7. COREG [Concomitant]
  8. KLONOPIN [Concomitant]
  9. POTASSIUM CHLORIDE [Concomitant]
  10. FIBERCON [Concomitant]
  11. ALDACTONE [Concomitant]
  12. FISH [Concomitant]
  13. CYPHER STENT [Concomitant]

REACTIONS (2)
  - ANGINA PECTORIS [None]
  - Coronary artery restenosis [None]
